FAERS Safety Report 19430003 (Version 1)
Quarter: 2021Q2

REPORT INFORMATION
  Report Type: Report from Study
  Country: US (occurrence: US)
  Receive Date: 20210617
  Receipt Date: 20210617
  Transmission Date: 20210717
  Serious: Yes (Death)
  Sender: FDA-Public Use
  Company Number: US-ROCHE-2850331

PATIENT

DRUGS (2)
  1. PERTUZUMAB. [Suspect]
     Active Substance: PERTUZUMAB
     Indication: PLASMA CELL MYELOMA
     Dosage: DATE OF MOST RECENT DOSE OF STUDY DRUG: 10/MAR/2021
     Route: 042
     Dates: start: 20201118
  2. TRASTUZUMAB. [Suspect]
     Active Substance: TRASTUZUMAB
     Indication: PLASMA CELL MYELOMA
     Dosage: DATE OF MOST RECENT DOSE OF STUDY DRUG: 10/MAR/2021
     Route: 042
     Dates: start: 20201118

REACTIONS (1)
  - Cardiac arrest [Fatal]

NARRATIVE: CASE EVENT DATE: 20210326
